FAERS Safety Report 11637555 (Version 4)
Quarter: 2016Q2

REPORT INFORMATION
  Report Type: Spontaneous
  Country: US (occurrence: US)
  Receive Date: 20151016
  Receipt Date: 20160505
  Transmission Date: 20160815
  Serious: Yes (Other)
  Sender: FDA-Public Use
  Company Number: US-MDT-ADR-2015-01973

PATIENT
  Age: 46 Year
  Sex: Male

DRUGS (4)
  1. BACLOFEN. [Suspect]
     Active Substance: BACLOFEN
     Dosage: 20 MG
     Route: 048
  2. KLONOPIN [Suspect]
     Active Substance: CLONAZEPAM
     Dosage: 0.5
  3. COMPOUNDED BACLOFEN [Suspect]
     Active Substance: BACLOFEN
     Dosage: 350 MCG/DAY
     Route: 037
  4. COMPOUNDED BACLOFEN [Suspect]
     Active Substance: BACLOFEN
     Dosage: 410.5 MCG/DAY
     Route: 037
     Dates: start: 20151120

REACTIONS (8)
  - Incorrect route of drug administration [Unknown]
  - Unevaluable event [Unknown]
  - Muscle spasticity [Unknown]
  - Feeling abnormal [Unknown]
  - Anxiety disorder [Unknown]
  - Influenza [Unknown]
  - Pruritus [Unknown]
  - Underdose [Unknown]
